FAERS Safety Report 5840907-1 (Version None)
Quarter: 2008Q3

REPORT INFORMATION
  Report Type: 
  Country: None (occurrence: None)
  Receive Date: 20080730
  Receipt Date: 20080430
  Transmission Date: 20090109
  Serious: Yes (Other)
  Sender: FDA-Public Use
  Company Number: PHEH2008US04198

PATIENT
  Sex: Female

DRUGS (1)
  1. TEKTURNA [Suspect]

REACTIONS (2)
  - LIP SWELLING [None]
  - PRURITUS [None]
